FAERS Safety Report 9520210 (Version 2)
Quarter: 2013Q4

REPORT INFORMATION
  Report Type: Report from Study
  Country: MX (occurrence: MX)
  Receive Date: 20130912
  Receipt Date: 20131009
  Transmission Date: 20140711
  Serious: Yes (Other)
  Sender: FDA-Public Use
  Company Number: MX-TAKEDA-2013TJP000530

PATIENT
  Sex: 0

DRUGS (3)
  1. PIOGLITAZONE, METFORMIN [Suspect]
     Indication: DIABETES MELLITUS
     Dosage: UNK, QD
     Route: 048
  2. HUMALOG LISPRO [Suspect]
     Indication: BLOOD GLUCOSE
  3. LANTUS [Concomitant]

REACTIONS (3)
  - Hypoglycaemic unconsciousness [Unknown]
  - Hyperglycaemia [Unknown]
  - Drug ineffective [Unknown]
